FAERS Safety Report 20003254 (Version 2)
Quarter: 2022Q1

REPORT INFORMATION
  Report Type: Spontaneous
  Country: US (occurrence: US)
  Receive Date: 20211027
  Receipt Date: 20220203
  Transmission Date: 20220423
  Serious: Yes (Hospitalization, Other)
  Sender: FDA-Public Use
  Company Number: US-PFIZER INC-202101371029

PATIENT
  Age: 82 Year
  Sex: Female
  Weight: 90.26 kg

DRUGS (1)
  1. IBRANCE [Suspect]
     Active Substance: PALBOCICLIB
     Indication: Breast cancer female
     Dosage: 75 MG, CYCLIC (ONCE A DAY BY MOUTH FOR 21 DAYS THEN OFF 7 DAYS)
     Route: 048

REACTIONS (3)
  - COVID-19 [Recovering/Resolving]
  - Atrial fibrillation [Recovering/Resolving]
  - Renal impairment [Unknown]
